FAERS Safety Report 8608716-8 (Version None)
Quarter: 2012Q3

REPORT INFORMATION
  Report Type: 
  Country: None (occurrence: None)
  Receive Date: 20120821
  Receipt Date: 20110920
  Transmission Date: 20120928
  Serious: No
  Sender: FDA-Public Use
  Company Number: US-MYLANLABS-2011S1016937

PATIENT
  Age: 39 Year
  Sex: Female
  Weight: 65.55 kg

DRUGS (2)
  1. LISINOPRIL [Suspect]
     Indication: HYPERTENSION
     Route: 048
     Dates: start: 20110309, end: 20110322
  2. ORTHO TRI-CYCLEN [Concomitant]
     Dates: start: 20110215, end: 20110322

REACTIONS (1)
  - SUICIDAL IDEATION [None]
